FAERS Safety Report 8591912-6 (Version None)
Quarter: 2012Q3

REPORT INFORMATION
  Report Type: 
  Country: None (occurrence: None)
  Receive Date: 20120814
  Receipt Date: 20120803
  Transmission Date: 20120928
  Serious: Yes (Hospitalization)
  Sender: FDA-Public Use
  Company Number: FR-GENZYME-CLOF-1002249

PATIENT
  Sex: Female
  Weight: 48 kg

DRUGS (7)
  1. NEFOPAM [Concomitant]
     Indication: PAIN
     Dosage: 4 AMP
     Route: 042
     Dates: start: 20120802
  2. RALOXIFENE HCL [Concomitant]
     Indication: OSTEOPOROSIS
     Dosage: 1 DF, QD
     Route: 048
  3. INDAPAMIDE [Concomitant]
     Indication: HYPERTENSION
     Dosage: 1 DF, QD
     Route: 048
  4. CLOFARABINE [Suspect]
     Indication: MYELODYSPLASTIC SYNDROME
     Dosage: 14.5 MG, QD
     Route: 042
     Dates: start: 20120716, end: 20120725
  5. LITICAN [Concomitant]
     Indication: VOMITING
  6. LITICAN [Concomitant]
     Indication: NAUSEA
     Dosage: 6 AMP, PRN
     Route: 042
     Dates: start: 20120802
  7. PANTOPRAZOLE [Concomitant]
     Indication: GASTROOESOPHAGEAL REFLUX DISEASE
     Dosage: 1 DF, QD
     Route: 048

REACTIONS (1)
  - FEBRILE BONE MARROW APLASIA [None]
